FAERS Safety Report 5494089-9 (Version None)
Quarter: 2007Q4

REPORT INFORMATION
  Report Type: 
  Country: None (occurrence: None)
  Receive Date: 20071023
  Receipt Date: 20071013
  Transmission Date: 20080405
  Serious: Yes (Other)
  Sender: FDA-Public Use
  Company Number: US-PFIZER INC-2007087823

PATIENT
  Sex: Male
  Weight: 104.3 kg

DRUGS (8)
  1. CHANTIX [Suspect]
     Indication: SMOKING CESSATION THERAPY
     Dates: start: 20061201, end: 20070301
  2. LIPITOR [Suspect]
     Indication: BLOOD CHOLESTEROL INCREASED
     Dates: start: 20060101, end: 20070101
  3. PLAVIX [Concomitant]
  4. NORVASC [Concomitant]
  5. ACETYLSALICYLIC ACID SRT [Concomitant]
  6. FUROSEMIDE [Concomitant]
  7. QUINAPRIL HCL [Concomitant]
  8. TOPROL-XL [Concomitant]

REACTIONS (5)
  - ABASIA [None]
  - BLOOD CHOLESTEROL INCREASED [None]
  - IRRITABILITY [None]
  - PERSONALITY DISORDER [None]
  - SMOKER [None]
